FAERS Safety Report 5821584-2 (Version None)
Quarter: 2008Q3

REPORT INFORMATION
  Report Type: 
  Country: None (occurrence: None)
  Receive Date: 20080724
  Receipt Date: 20080722
  Transmission Date: 20090109
  Serious: Yes (Death, Other)
  Sender: FDA-Public Use
  Company Number: PHEH2008US06522

PATIENT
  Sex: Female

DRUGS (1)
  1. NEORAL [Suspect]

REACTIONS (2)
  - DEATH [None]
  - RENAL FAILURE [None]
